FAERS Safety Report 9132376 (Version 1)
Quarter: 2013Q1

REPORT INFORMATION
  Report Type: Spontaneous
  Country: FR (occurrence: FR)
  Receive Date: 20130301
  Receipt Date: 20130301
  Transmission Date: 20140127
  Serious: Yes (Hospitalization)
  Sender: FDA-Public Use
  Company Number: FR-PFIZER INC-2013070132

PATIENT
  Age: 79 Year
  Sex: Female

DRUGS (3)
  1. SOLU-MEDROL [Suspect]
     Indication: PREMEDICATION
     Dosage: 120 MG, EVERY 3 WEEKS
     Dates: start: 20121116, end: 20130122
  2. ONDANSETRON [Concomitant]
     Indication: PREMEDICATION
     Dosage: 8 MG, EVERY 3 WEEKS
  3. CHEMOTHERAPY NOS [Concomitant]
     Indication: NEOPLASM MALIGNANT
     Dosage: UNK

REACTIONS (1)
  - Anaphylactic shock [Recovered/Resolved]
